FAERS Safety Report 5843407-8 (Version None)
Quarter: 2008Q3

REPORT INFORMATION
  Report Type: 
  Country: None (occurrence: None)
  Receive Date: 20080813
  Receipt Date: 20080804
  Transmission Date: 20090109
  Serious: Yes (Hospitalization)
  Sender: FDA-Public Use
  Company Number: B0516003A

PATIENT
  Age: 60 Year
  Sex: Male

DRUGS (11)
  1. COMBIVIR [Suspect]
     Indication: HIV INFECTION
     Dosage: 2TAB PER DAY
     Route: 048
     Dates: start: 19981002
  2. VIRACEPT [Suspect]
     Indication: HIV INFECTION
     Dosage: 250MG PER DAY
     Route: 048
     Dates: start: 19981002, end: 20070608
  3. RETROVIR [Concomitant]
     Indication: HIV INFECTION
     Route: 048
     Dates: start: 19960506, end: 19981002
  4. EPIVIR [Concomitant]
     Indication: HIV INFECTION
     Route: 048
     Dates: start: 19960909, end: 19981002
  5. KALETRA [Concomitant]
     Indication: HIV INFECTION
     Route: 048
     Dates: start: 20070608, end: 20070731
  6. REYATAZ [Concomitant]
     Indication: HIV INFECTION
     Dosage: 2CAP PER DAY
     Route: 048
     Dates: start: 20070731
  7. VIDEX [Concomitant]
     Indication: HIV INFECTION
     Route: 048
     Dates: start: 19960506, end: 19960909
  8. NORVIR [Concomitant]
     Indication: HIV INFECTION
     Route: 048
     Dates: start: 19961212, end: 19981002
  9. AMLOR [Concomitant]
     Indication: DRUG USE FOR UNKNOWN INDICATION
  10. KARDEGIC 160 [Concomitant]
     Indication: DRUG USE FOR UNKNOWN INDICATION
  11. TADENAN 50 [Concomitant]
     Indication: DRUG USE FOR UNKNOWN INDICATION

REACTIONS (6)
  - ACUTE MYELOID LEUKAEMIA [None]
  - BLOOD ALKALINE PHOSPHATASE INCREASED [None]
  - BLOOD LACTATE DEHYDROGENASE INCREASED [None]
  - HYPERCOAGULATION [None]
  - HYPERPROTEINAEMIA [None]
  - NEUTROPENIA [None]
